FAERS Safety Report 10664630 (Version 5)
Quarter: 2015Q3

REPORT INFORMATION
  Report Type: Report from Study
  Country: US (occurrence: US)
  Receive Date: 20141219
  Receipt Date: 20150715
  Transmission Date: 20151125
  Serious: Yes (Other)
  Sender: FDA-Public Use
  Company Number: US-SA-2013SA096128

PATIENT
  Age: 68 Year
  Sex: Male

DRUGS (1)
  1. AUBAGIO [Suspect]
     Active Substance: TERIFLUNOMIDE
     Indication: MULTIPLE SCLEROSIS
     Route: 048
     Dates: start: 20130905

REACTIONS (4)
  - Diarrhoea [Recovering/Resolving]
  - Asthenia [Not Recovered/Not Resolved]
  - Wheelchair user [Unknown]
  - Condition aggravated [Unknown]

NARRATIVE: CASE EVENT DATE: 20130913
